FAERS Safety Report 8411030-7 (Version None)
Quarter: 2012Q2

REPORT INFORMATION
  Report Type: 
  Country: None (occurrence: None)
  Receive Date: 20120605
  Receipt Date: 20120501
  Transmission Date: 20120825
  Serious: No
  Sender: FDA-Public Use
  Company Number: US-AMGEN-USASP2012027452

PATIENT
  Age: 79 Year
  Sex: Female

DRUGS (12)
  1. LISINOPRIL [Concomitant]
     Dosage: UNK
  2. FOLIC ACID [Concomitant]
     Dosage: 1 MG, UNK
  3. ENBREL [Suspect]
     Indication: RHEUMATOID ARTHRITIS
     Dosage: 50 MG, QWK
     Dates: start: 20120301
  4. LIPITOR [Concomitant]
     Dosage: 1 MG, UNK
  5. METHOTREXATE [Concomitant]
     Dosage: 7 MG, UNK
  6. LANTUS [Concomitant]
     Dosage: UNK
  7. CENTRUM                            /00554501/ [Concomitant]
     Dosage: UNK
  8. CALTRATE                           /00751519/ [Concomitant]
     Dosage: UNK
  9. ACIPHEX [Concomitant]
     Dosage: UNK
  10. HUMALOG [Concomitant]
     Dosage: UNK
  11. VITAMIN D [Concomitant]
     Dosage: UNK
  12. LEVOBUNOLOL HCL [Concomitant]
     Dosage: UNK
     Route: 047

REACTIONS (1)
  - INJECTION SITE ERYTHEMA [None]
